FAERS Safety Report 18070358 (Version 1)
Quarter: 2020Q3

REPORT INFORMATION
  Report Type: Spontaneous
  Country: FR (occurrence: FR)
  Receive Date: 20200727
  Receipt Date: 20200727
  Transmission Date: 20201103
  Serious: Yes (Hospitalization)
  Sender: FDA-Public Use
  Company Number: FR-TEVA-2020-FR-1805055

PATIENT
  Age: 37 Year
  Sex: Female
  Weight: 74 kg

DRUGS (2)
  1. AMOXICILLIN. [Suspect]
     Active Substance: AMOXICILLIN
     Indication: COUGH
     Dosage: 3 GRAM
     Route: 048
     Dates: start: 20200517, end: 20200522
  2. CEFIXIME. [Suspect]
     Active Substance: CEFIXIME
     Indication: COUGH
     Route: 048
     Dates: start: 20200601, end: 20200608

REACTIONS (1)
  - Tubulointerstitial nephritis [Recovering/Resolving]

NARRATIVE: CASE EVENT DATE: 20200610
